FAERS Safety Report 4834164-2 (Version None)
Quarter: 2005Q4

REPORT INFORMATION
  Report Type: 
  Country: None (occurrence: None)
  Receive Date: 20051122
  Receipt Date: 20051110
  Transmission Date: 20060501
  Serious: Yes (Hospitalization)
  Sender: FDA-Public Use
  Company Number: KR-JNJFOC-20051103129

PATIENT
  Age: 24 Year
  Sex: Male
  Weight: 81 kg

DRUGS (7)
  1. RISPERDAL [Suspect]
     Route: 048
  2. RISPERDAL [Suspect]
     Indication: SCHIZOPHRENIA
     Route: 048
  3. LITHIUM [Concomitant]
  4. LORAZEPAM [Concomitant]
  5. VALPROATE SODIUM [Concomitant]
  6. VALIUM [Concomitant]
  7. BENZTROPINE MESYLATE [Concomitant]

REACTIONS (5)
  - DIABETES INSIPIDUS [None]
  - HYPERPROLACTINAEMIA [None]
  - POLYDIPSIA [None]
  - POLYURIA [None]
  - WEIGHT INCREASED [None]
